FAERS Safety Report 6699403-4 (Version None)
Quarter: 2010Q2

REPORT INFORMATION
  Report Type: 
  Country: None (occurrence: None)
  Receive Date: 20100427
  Receipt Date: 20100419
  Transmission Date: 20101027
  Serious: Yes (Other)
  Sender: FDA-Public Use
  Company Number: FR-AMGEN-QUU406805

PATIENT
  Sex: Female

DRUGS (2)
  1. ARANESP [Suspect]
     Indication: ANAEMIA OF MALIGNANT DISEASE
     Route: 058
     Dates: start: 20090306, end: 20090525
  2. SPRYCEL [Concomitant]
     Dates: start: 20090306

REACTIONS (2)
  - BASAL CELL CARCINOMA [None]
  - THROMBOCYTOPENIA [None]
